FAERS Safety Report 9746113 (Version 1)
Quarter: 2013Q4

REPORT INFORMATION
  Report Type: Spontaneous
  Country: US (occurrence: US)
  Receive Date: 20131211
  Receipt Date: 20131211
  Transmission Date: 20140711
  Serious: No
  Sender: FDA-Public Use
  Company Number: US-GILEAD-2009-0024591

PATIENT
  Sex: Male

DRUGS (4)
  1. ATRIPLA [Suspect]
  2. MORPHINE [Concomitant]
  3. CIPRO [Concomitant]
  4. XANAX [Concomitant]

REACTIONS (5)
  - Nausea [Unknown]
  - Dizziness [Unknown]
  - Diarrhoea [Unknown]
  - Vomiting [Unknown]
  - Hepatitis B [Unknown]
